FAERS Safety Report 25348595 (Version 1)
Quarter: 2025Q2

REPORT INFORMATION
  Report Type: Spontaneous
  Country: ES (occurrence: ES)
  Receive Date: 20250522
  Receipt Date: 20250522
  Transmission Date: 20250716
  Serious: Yes (Other)
  Sender: FRESENIUS KABI
  Company Number: None

PATIENT
  Age: 75 Year
  Sex: Female

DRUGS (2)
  1. LIDOCAINE [Suspect]
     Active Substance: LIDOCAINE
     Indication: Blepharoplasty
     Route: 058
     Dates: start: 20241204, end: 20241204
  2. EPINEPHRINE [Suspect]
     Active Substance: EPINEPHRINE
     Indication: Blepharoplasty
     Route: 058
     Dates: start: 20241204, end: 20241204

REACTIONS (2)
  - Hypertensive crisis [Recovered/Resolved]
  - Tachycardia [Recovered/Resolved]

NARRATIVE: CASE EVENT DATE: 20241204
